FAERS Safety Report 4944325-X (Version None)
Quarter: 2006Q1

REPORT INFORMATION
  Report Type: 
  Country: None (occurrence: None)
  Receive Date: 20060315
  Receipt Date: 20050823
  Transmission Date: 20060701
  Serious: Yes (Hospitalization, Disabling, Other)
  Sender: FDA-Public Use
  Company Number: US-MERCK-0508USA03935

PATIENT
  Age: 66 Year
  Sex: Female
  Weight: 78 kg

DRUGS (14)
  1. VIOXX [Suspect]
     Indication: ARTHRALGIA
     Route: 048
     Dates: start: 20030626, end: 20040930
  2. AVANDIA [Concomitant]
     Route: 065
  3. PREMARIN [Concomitant]
     Route: 065
  4. IMIPRAMINE PAMOATE [Concomitant]
     Route: 065
  5. PRAVACHOL [Concomitant]
     Route: 065
  6. DETROL [Concomitant]
     Route: 065
  7. GLYBURIDE [Concomitant]
     Route: 065
  8. LISINOPRIL [Concomitant]
     Route: 065
  9. CIPRO [Concomitant]
     Route: 065
  10. NEXIUM [Concomitant]
     Route: 065
  11. QUININE SULFATE [Concomitant]
     Route: 065
  12. PLETAL [Concomitant]
     Route: 065
  13. XALATAN [Concomitant]
     Route: 065
  14. DOC-Q-LACE [Concomitant]
     Route: 065

REACTIONS (7)
  - ANGIOPATHY [None]
  - CHEST PAIN [None]
  - FATIGUE [None]
  - MYOCARDIAL INFARCTION [None]
  - SWELLING [None]
  - TREMOR [None]
  - VOMITING [None]
